FAERS Safety Report 7124385-0 (Version None)
Quarter: 2010Q4

REPORT INFORMATION
  Report Type: 
  Country: None (occurrence: None)
  Receive Date: 20101126
  Receipt Date: 20101122
  Transmission Date: 20110411
  Serious: Yes (Death)
  Sender: FDA-Public Use
  Company Number: PHHY2010SI79347

PATIENT
  Sex: Male

DRUGS (5)
  1. ZOLEDRONATE T29581+ [Suspect]
     Indication: PROPHYLAXIS
     Dosage: 4MG/ 5ML EVERY 4 WEEKS
     Route: 042
     Dates: start: 20071219, end: 20080623
  2. CASODEX [Concomitant]
     Dosage: 150 MG DAILY
     Route: 048
     Dates: start: 20071011
  3. OLFEN [Concomitant]
     Dosage: 75 MG, BID
     Dates: start: 20080301
  4. LYRICA [Concomitant]
     Dosage: 75 MG, UNK
     Dates: start: 20080601
  5. OMNIC [Concomitant]
     Dosage: 0.4 MG, DAILY
     Route: 048
     Dates: start: 20080601

REACTIONS (1)
  - DEATH [None]
